FAERS Safety Report 17687939 (Version 3)
Quarter: 2020Q3

REPORT INFORMATION
  Report Type: Report from Study
  Country: CO (occurrence: CO)
  Receive Date: 20200421
  Receipt Date: 20200727
  Transmission Date: 20201102
  Serious: Yes (Other)
  Sender: FDA-Public Use
  Company Number: CO-BRISTOL-MYERS SQUIBB COMPANY-BMS-2020-007090

PATIENT
  Age: 45 Year
  Sex: Male
  Weight: 62 kg

DRUGS (1)
  1. NIVOLUMAB [Suspect]
     Active Substance: NIVOLUMAB
     Indication: HEAD AND NECK CANCER
     Dosage: 192 MILLIGRAM EVERY 15 DAYS
     Route: 042
     Dates: start: 20200102

REACTIONS (7)
  - Prescribed overdose [Recovered/Resolved]
  - Speech disorder [Recovering/Resolving]
  - Off label use [Recovered/Resolved]
  - Nasal congestion [Recovering/Resolving]
  - Neoplasm [Recovering/Resolving]
  - Tumour pain [Unknown]
  - Tonsillar disorder [Recovering/Resolving]

NARRATIVE: CASE EVENT DATE: 20200125
